FAERS Safety Report 7929017-7 (Version None)
Quarter: 2011Q4

REPORT INFORMATION
  Report Type: 
  Country: None (occurrence: None)
  Receive Date: 20111118
  Receipt Date: 20111107
  Transmission Date: 20120403
  Serious: Yes (Hospitalization)
  Sender: FDA-Public Use
  Company Number: US-ROCHE-1012244

PATIENT

DRUGS (5)
  1. HERCEPTIN [Suspect]
     Indication: BREAST CANCER METASTATIC
     Dosage: OVER 90 MIN ON DAY 1, WEEK 1
     Route: 042
     Dates: start: 20041109
  2. CARBOPLATIN [Suspect]
     Indication: BREAST CANCER METASTATIC
     Dosage: AUC 2 IV OVER 1 HOUR ON DAYS 1, 8, AND 15
     Route: 042
     Dates: start: 20041109
  3. DEXAMETHASONE [Suspect]
     Indication: PRODUCT USED FOR UNKNOWN INDICATION
  4. DIPHENHYDRAMINE HCL [Suspect]
     Indication: PRODUCT USED FOR UNKNOWN INDICATION
  5. IXABEPILONE [Suspect]
     Indication: BREAST CANCER METASTATIC
     Dosage: OVER 1 HOUR ON DAYS 1, 8, AND 15
     Route: 042
     Dates: start: 20041109

REACTIONS (2)
  - AGITATION [None]
  - ANXIETY [None]
